FAERS Safety Report 20556996 (Version 1)
Quarter: 2022Q1

REPORT INFORMATION
  Report Type: Spontaneous
  Country: US (occurrence: US)
  Receive Date: 20220307
  Receipt Date: 20220307
  Transmission Date: 20220423
  Serious: No
  Sender: FDA-Public Use
  Company Number: US-BoehringerIngelheim-2022-BI-157645

PATIENT
  Age: 74 Year
  Sex: Male

DRUGS (2)
  1. PRADAXA [Suspect]
     Active Substance: DABIGATRAN ETEXILATE MESYLATE
     Indication: Thrombosis
     Dates: start: 2019
  2. IBUPROFEN [Suspect]
     Active Substance: IBUPROFEN
     Indication: Product used for unknown indication
     Dosage: 400 MG PRN

REACTIONS (4)
  - Fall [Recovering/Resolving]
  - Somnolence [Not Recovered/Not Resolved]
  - Bone contusion [Unknown]
  - Pain [Unknown]

NARRATIVE: CASE EVENT DATE: 20220220
